FAERS Safety Report 8419406-9 (Version None)
Quarter: 2012Q2

REPORT INFORMATION
  Report Type: 
  Country: None (occurrence: None)
  Receive Date: 20120607
  Receipt Date: 20120531
  Transmission Date: 20120825
  Serious: Yes (Hospitalization)
  Sender: FDA-Public Use
  Company Number: US-GLAXOSMITHKLINE-A0906336A

PATIENT
  Age: 61 Year
  Sex: Female

DRUGS (4)
  1. LANTUS [Concomitant]
  2. AVANDIA [Suspect]
     Indication: DIABETES MELLITUS
     Dosage: 4MG PER DAY
     Route: 048
     Dates: start: 20030101, end: 20081201
  3. FOSAMAX [Concomitant]
  4. METFORMIN HCL [Concomitant]

REACTIONS (7)
  - PAIN [None]
  - HYPERLIPIDAEMIA [None]
  - DIZZINESS [None]
  - MEMORY IMPAIRMENT [None]
  - STRESS CARDIOMYOPATHY [None]
  - HYPERTENSION [None]
  - MYOCARDIAL INFARCTION [None]
